FAERS Safety Report 4406052-7 (Version None)
Quarter: 2004Q3

REPORT INFORMATION
  Report Type: 
  Country: None (occurrence: None)
  Receive Date: 20040723
  Receipt Date: 20040401
  Transmission Date: 20050211
  Serious: No
  Sender: FDA-Public Use
  Company Number: US-GLAXOSMITHKLINE-A0505553A

PATIENT
  Age: 72 Year
  Sex: Male

DRUGS (6)
  1. AVANDIA [Suspect]
     Route: 048
     Dates: end: 20040307
  2. COUMADIN [Concomitant]
  3. METFORMIN HCL [Concomitant]
  4. CAPTOPRIL [Concomitant]
  5. CARBIDOPA [Concomitant]
  6. ASPIRIN [Concomitant]

REACTIONS (2)
  - ARTHRALGIA [None]
  - JOINT SWELLING [None]
